FAERS Safety Report 7127981-X (Version None)
Quarter: 2010Q4

REPORT INFORMATION
  Report Type: 
  Country: None (occurrence: None)
  Receive Date: 20101130
  Receipt Date: 20101124
  Transmission Date: 20110411
  Serious: Yes (Other)
  Sender: FDA-Public Use
  Company Number: US-PFIZER INC-2010157423

PATIENT
  Sex: Female
  Weight: 54.4 kg

DRUGS (3)
  1. PREMARIN [Suspect]
     Indication: MENOPAUSAL SYMPTOMS
     Dosage: UNK
     Route: 048
     Dates: end: 20050101
  2. LEVOTHYROXINE [Concomitant]
     Dosage: UNK
  3. CLONIDINE [Concomitant]
     Dosage: UNK

REACTIONS (6)
  - DEAFNESS [None]
  - DELIRIUM [None]
  - DEMENTIA [None]
  - TEMPORAL ARTERITIS [None]
  - URINARY RETENTION [None]
  - VASCULAR SHUNT [None]
